FAERS Safety Report 4817890-0 (Version None)
Quarter: 2005Q3

REPORT INFORMATION
  Report Type: 
  Country: None (occurrence: None)
  Receive Date: 20050929
  Receipt Date: 20050624
  Transmission Date: 20060218
  Serious: No
  Sender: FDA-Public Use
  Company Number: 05P-163-0304053-00

PATIENT
  Age: 47 Year
  Sex: Female
  Weight: 53.0709 kg

DRUGS (7)
  1. HUMIRA [Suspect]
     Indication: RHEUMATOID ARTHRITIS
     Dosage: 40 MG, 1 IN 2 WK, SUBCUTANEOUS
     Route: 058
     Dates: start: 20050301
  2. METHOTREXATE SODIUM [Concomitant]
  3. TAMOXIFEN [Concomitant]
  4. ATENOLOL [Concomitant]
  5. LEVOTHYROXINE [Concomitant]
  6. FOLIC ACID [Concomitant]
  7. NAPROSEN [Concomitant]

REACTIONS (2)
  - FLATULENCE [None]
  - NAUSEA [None]
